FAERS Safety Report 6759000-9 (Version None)
Quarter: 2010Q2

REPORT INFORMATION
  Report Type: 
  Country: None (occurrence: None)
  Receive Date: 20100602
  Receipt Date: 20100525
  Transmission Date: 20101027
  Serious: No
  Sender: FDA-Public Use
  Company Number: 599755

PATIENT
  Age: 27 Year
  Sex: Female

DRUGS (2)
  1. MAGNESIUM SULFATE [Suspect]
     Indication: DRUG USE FOR UNKNOWN INDICATION
     Dosage: 100ML, 300ML/HR, INTRAVENOUS, 300ML/HR, INTRAVENOUS
     Route: 042
     Dates: end: 20100513
  2. MAGNESIUM SULFATE [Suspect]
     Indication: DRUG USE FOR UNKNOWN INDICATION
     Dosage: 100ML, 300ML/HR, INTRAVENOUS, 300ML/HR, INTRAVENOUS
     Route: 042
     Dates: start: 20100512

REACTIONS (5)
  - BLOOD MAGNESIUM INCREASED [None]
  - DRUG EXPOSURE DURING PREGNANCY [None]
  - HYPOAESTHESIA [None]
  - INCORRECT DRUG ADMINISTRATION RATE [None]
  - UNRESPONSIVE TO STIMULI [None]
